FAERS Safety Report 22144884 (Version 2)
Quarter: 2023Q1

REPORT INFORMATION
  Report Type: Report from Study
  Country: NL (occurrence: NL)
  Receive Date: 20230328
  Receipt Date: 20230331
  Transmission Date: 20230417
  Serious: Yes (Hospitalization)
  Sender: FDA-Public Use
  Company Number: NL-AstraZeneca-2023A066001

PATIENT
  Sex: Female
  Weight: 4 kg

DRUGS (2)
  1. SYNAGIS [Suspect]
     Active Substance: PALIVIZUMAB
     Indication: Antiviral prophylaxis
     Dosage: 1 IN 1 MONTH
     Route: 030
     Dates: start: 20230217
  2. FERROCHLORIDE [Concomitant]
     Indication: Product used for unknown indication

REACTIONS (1)
  - Choking [Not Recovered/Not Resolved]
